FAERS Safety Report 4304089-X (Version None)
Quarter: 2004Q1

REPORT INFORMATION
  Report Type: 
  Country: None (occurrence: None)
  Receive Date: 20040223
  Receipt Date: 20031219
  Transmission Date: 20041129
  Serious: No
  Sender: FDA-Public Use
  Company Number: PHEH2003US11578

PATIENT
  Age: 50 Year
  Sex: Female

DRUGS (2)
  1. ZELNORM [Suspect]
     Indication: IRRITABLE BOWEL SYNDROME
     Dosage: 6 MG, BID, ORAL
     Route: 048
     Dates: start: 20031208
  2. DAILY VITAMINS (VITAMINS NOS) [Concomitant]

REACTIONS (2)
  - INSOMNIA [None]
  - IRRITABILITY [None]
